FAERS Safety Report 25904978 (Version 1)
Quarter: 2025Q4

REPORT INFORMATION
  Report Type: Spontaneous
  Country: ME (occurrence: ME)
  Receive Date: 20251010
  Receipt Date: 20251010
  Transmission Date: 20260118
  Serious: Yes (Hospitalization, Other)
  Sender: ADAPTIS PHARMA INDIA
  Company Number: ME-Adaptis Pharma Private Limited-2186295

PATIENT
  Age: 42 Year
  Sex: Female

DRUGS (3)
  1. LEVETIRACETAM [Suspect]
     Active Substance: LEVETIRACETAM
     Indication: Seizure
  2. LAMOTRIGINE [Concomitant]
     Active Substance: LAMOTRIGINE
  3. OXCARBAZEPINE [Concomitant]
     Active Substance: OXCARBAZEPINE

REACTIONS (2)
  - Hypersensitivity [Recovered/Resolved]
  - Exposure during pregnancy [Unknown]
